FAERS Safety Report 5326558-6 (Version None)
Quarter: 2007Q2

REPORT INFORMATION
  Report Type: 
  Country: None (occurrence: None)
  Receive Date: 20070510
  Receipt Date: 20070503
  Transmission Date: 20071010
  Serious: Yes (Hospitalization)
  Sender: FDA-Public Use
  Company Number: 2007-02223

PATIENT
  Age: 58 Year
  Sex: Male

DRUGS (15)
  1. TRIHEXYPHENIDYL HCL [Suspect]
     Indication: PARKINSON'S DISEASE
     Dosage: 2 MG BID, ORAL
     Route: 048
  2. JANTOVEN [Suspect]
     Indication: THROMBOSIS
     Dosage: SEE IMAGE
     Route: 048
     Dates: start: 20070404, end: 20070404
  3. JANTOVEN [Suspect]
     Indication: THROMBOSIS
     Dosage: SEE IMAGE
     Route: 048
     Dates: start: 20070405, end: 20070405
  4. JANTOVEN [Suspect]
     Indication: THROMBOSIS
     Dosage: SEE IMAGE
     Route: 048
     Dates: start: 20070406, end: 20070406
  5. JANTOVEN [Suspect]
     Indication: THROMBOSIS
     Dosage: SEE IMAGE
     Route: 048
     Dates: start: 20070407, end: 20070407
  6. JANTOVEN [Suspect]
     Indication: THROMBOSIS
     Dosage: SEE IMAGE
     Route: 048
     Dates: start: 20070408, end: 20070408
  7. JANTOVEN [Suspect]
     Indication: THROMBOSIS
     Dosage: SEE IMAGE
     Route: 048
     Dates: start: 20070409, end: 20070409
  8. WARFARIN SODIUM [Suspect]
     Indication: THROMBOSIS
     Dosage: 7.5 MG, DAILY, ORAL
     Route: 048
     Dates: start: 20070330, end: 20070403
  9. COMTAN [Suspect]
     Indication: PARKINSON'S DISEASE
     Dosage: 200 MG, QID, ORAL
     Route: 048
  10. SINEMET [Suspect]
     Indication: PARKINSON'S DISEASE
     Dosage: 6.5 TABLET, DAILY, ORAL
     Route: 048
  11. SINEMET CR [Suspect]
     Indication: PARKINSON'S DISEASE
     Dosage: 2 TABLET, DAILY, ORAL
     Route: 048
  12. AMBIEN [Concomitant]
  13. REQUIP [Concomitant]
  14. CALCIUM CHLORIDE [Concomitant]
  15. MULTIVITAMINS (ERGOCALCIFEROL, NICOTINAMIDE, PANTHENOL, RETINOL, RIBOF [Concomitant]

REACTIONS (11)
  - ACTIVITIES OF DAILY LIVING IMPAIRED [None]
  - ASTHENIA [None]
  - BACK PAIN [None]
  - DISEASE PROGRESSION [None]
  - DRUG INEFFECTIVE [None]
  - DRUG INTERACTION [None]
  - INSOMNIA [None]
  - MUSCLE RIGIDITY [None]
  - PAIN [None]
  - PARKINSON'S DISEASE [None]
  - RESTLESSNESS [None]
